FAERS Safety Report 4316253-4 (Version None)
Quarter: 2004Q1

REPORT INFORMATION
  Report Type: 
  Country: None (occurrence: None)
  Receive Date: 20040310
  Receipt Date: 20030508
  Transmission Date: 20041129
  Serious: Yes (Other)
  Sender: FDA-Public Use
  Company Number: HQ4732221OCT2002

PATIENT
  Age: 75 Year
  Sex: Male

DRUGS (1)
  1. PROTONIX [Suspect]
     Dosage: 40 MG 1 X PER DAY, ORAL
     Route: 048

REACTIONS (2)
  - PRURITUS [None]
  - VISION BLURRED [None]
